FAERS Safety Report 5494454-X (Version None)
Quarter: 2007Q4

REPORT INFORMATION
  Report Type: 
  Country: None (occurrence: None)
  Receive Date: 20071022
  Receipt Date: 20071022
  Transmission Date: 20080405
  Serious: Yes (Other)
  Sender: FDA-Public Use
  Company Number: None

PATIENT
  Age: 39 Year
  Sex: Female
  Weight: 90.7194 kg

DRUGS (1)
  1. ZICAM COLD REMEDY NASAL GEL ZICAM LLC [Suspect]
     Indication: NASOPHARYNGITIS
     Dosage: 1 SQUIRT 1X NASAL
     Route: 045
     Dates: start: 20071011, end: 20071011

REACTIONS (2)
  - ANOSMIA [None]
  - BLINDNESS UNILATERAL [None]
